FAERS Safety Report 7648294-3 (Version None)
Quarter: 2011Q3

REPORT INFORMATION
  Report Type: 
  Country: None (occurrence: None)
  Receive Date: 20110801
  Receipt Date: 20110727
  Transmission Date: 20111222
  Serious: Yes (Hospitalization, Other)
  Sender: FDA-Public Use
  Company Number: CL-PFIZER INC-2011163247

PATIENT
  Age: 67 Year
  Sex: Female

DRUGS (3)
  1. LIPITOR [Concomitant]
     Dosage: UNK
     Dates: start: 20090101, end: 20110722
  2. NORVASC [Suspect]
     Indication: HYPERTENSION
     Dosage: 5 MG, 1X/DAY
     Route: 048
  3. LEVOTHYROXINE SODIUM [Concomitant]
     Indication: THYROIDECTOMY
     Dosage: 125 UG, 1X/DAY
     Route: 048
     Dates: start: 20040101

REACTIONS (6)
  - ALOPECIA [None]
  - CONTUSION [None]
  - HEPATIC MASS [None]
  - CONJUNCTIVITIS [None]
  - THROMBOCYTOPENIA [None]
  - HEADACHE [None]
